FAERS Safety Report 20779884 (Version 5)
Quarter: 2023Q4

REPORT INFORMATION
  Report Type: Spontaneous
  Country: US (occurrence: US)
  Receive Date: 20220503
  Receipt Date: 20231218
  Transmission Date: 20240110
  Serious: No
  Sender: FDA-Public Use
  Company Number: US-PFIZER INC-2020475683

PATIENT
  Age: 88 Year
  Sex: Female

DRUGS (2)
  1. EUCRISA [Suspect]
     Active Substance: CRISABOROLE
     Dosage: UNK, 2X/DAY TO LEGS, FEET, AND ARMS
     Route: 061
  2. EUCRISA [Suspect]
     Active Substance: CRISABOROLE
     Dosage: 1 G, AS NEEDED (APPLY TO AFFECTED AREAS TWICE DAILY)
     Route: 061

REACTIONS (3)
  - Off label use [Unknown]
  - Acne [Unknown]
  - Cardiac disorder [Unknown]
